FAERS Safety Report 4889745-7 (Version None)
Quarter: 2006Q1

REPORT INFORMATION
  Report Type: 
  Country: None (occurrence: None)
  Receive Date: 20060124
  Receipt Date: 20050317
  Transmission Date: 20060701
  Serious: Yes (Hospitalization)
  Sender: FDA-Public Use
  Company Number: US-MERCK-0503USA03408

PATIENT
  Age: 55 Year
  Sex: Male
  Weight: 102 kg

DRUGS (6)
  1. VIOXX [Suspect]
     Indication: ARTHRITIS
     Route: 048
     Dates: start: 20000101, end: 20040801
  2. VICODIN [Concomitant]
     Route: 065
  3. ATIVAN [Concomitant]
     Route: 065
  4. ATACAND [Concomitant]
     Route: 065
  5. ACCOLATE [Concomitant]
     Route: 065
  6. ALBUTEROL [Concomitant]
     Route: 065

REACTIONS (9)
  - BACK PAIN [None]
  - CAROTID ARTERY STENOSIS [None]
  - CEREBRAL ARTERY STENOSIS [None]
  - CEREBRAL INFARCTION [None]
  - CEREBROVASCULAR ACCIDENT [None]
  - FACIAL PALSY [None]
  - FEMORAL ARTERY OCCLUSION [None]
  - ISCHAEMIC STROKE [None]
  - NEUROPATHY [None]
